FAERS Safety Report 8820316 (Version 1)
Quarter: 2012Q4

REPORT INFORMATION
  Report Type: 
  Country: US (occurrence: US)
  Receive Date: 20121002
  Receipt Date: 20121002
  Transmission Date: 20130627
  Serious: No
  Sender: FDA-Public Use
  Company Number: US-009507513-1210USA000443

PATIENT
  Sex: Female

DRUGS (3)
  1. VICTRELIS [Suspect]
     Indication: HEPATITIS C
     Dosage: 800 mg, tid
     Route: 048
     Dates: start: 201205
  2. PEGASYS [Concomitant]
  3. RIBAPAK [Concomitant]

REACTIONS (5)
  - Pain [Unknown]
  - Amnesia [Unknown]
  - Headache [Unknown]
  - Dysgeusia [Unknown]
  - Fatigue [Unknown]
